FAERS Safety Report 9445729 (Version 2)
Quarter: 2013Q3

REPORT INFORMATION
  Report Type: Spontaneous
  Country: JP (occurrence: JP)
  Receive Date: 20130807
  Receipt Date: 20130816
  Transmission Date: 20140515
  Serious: Yes (Hospitalization)
  Sender: FDA-Public Use
  Company Number: JP-BRISTOL-MYERS SQUIBB COMPANY-19149558

PATIENT
  Age: 94 Year
  Sex: Female
  Weight: 45 kg

DRUGS (6)
  1. ELIQUIS [Suspect]
     Indication: THROMBOSIS PROPHYLAXIS
     Dosage: TAB
     Route: 048
     Dates: start: 20130709, end: 20130718
  2. LASIX [Concomitant]
  3. ARTIST [Concomitant]
     Route: 048
  4. TAGAMET [Concomitant]
  5. BUFFERIN [Concomitant]
     Route: 048
  6. HERBESSER [Concomitant]

REACTIONS (1)
  - Cerebral infarction [Unknown]
